FAERS Safety Report 24390356 (Version 1)
Quarter: 2024Q4

REPORT INFORMATION
  Report Type: Spontaneous
  Country: US (occurrence: US)
  Receive Date: 20241003
  Receipt Date: 20241003
  Transmission Date: 20250115
  Serious: Yes (Other)
  Sender: STRIDES
  Company Number: US-STRIDES ARCOLAB LIMITED-2024SP007998

PATIENT
  Sex: Female

DRUGS (9)
  1. URSODIOL [Suspect]
     Active Substance: URSODIOL
     Indication: Hypertriglyceridaemia
     Dosage: UNK
     Route: 065
  2. METFORMIN [Suspect]
     Active Substance: METFORMIN HYDROCHLORIDE
     Indication: Type 2 diabetes mellitus
     Dosage: UNK
     Route: 065
  3. GEMFIBROZIL [Suspect]
     Active Substance: GEMFIBROZIL
     Indication: Hypertriglyceridaemia
     Dosage: UNK
     Route: 065
  4. PRAVASTATIN [Suspect]
     Active Substance: PRAVASTATIN
     Indication: Hypertriglyceridaemia
     Dosage: UNK
     Route: 065
  5. ATORVASTATIN [Suspect]
     Active Substance: ATORVASTATIN
     Indication: Hypertriglyceridaemia
     Dosage: UNK
     Route: 065
  6. FENOFIBRATE [Suspect]
     Active Substance: FENOFIBRATE
     Indication: Hypertriglyceridaemia
     Dosage: UNK
     Route: 065
  7. PIOGLITAZONE [Suspect]
     Active Substance: PIOGLITAZONE
     Indication: Hypertriglyceridaemia
     Dosage: UNK
     Route: 065
  8. INSULIN NOS [Suspect]
     Active Substance: INSULIN NOS
     Indication: Type 2 diabetes mellitus
     Dosage: UNK
     Route: 065
  9. OMEGA-3 FATTY ACIDS [Suspect]
     Active Substance: OMEGA-3 FATTY ACIDS
     Indication: Supplementation therapy
     Dosage: UNK
     Route: 065

REACTIONS (4)
  - Drug ineffective for unapproved indication [Unknown]
  - Anxiety [Unknown]
  - Depression [Unknown]
  - Maternal exposure during pregnancy [Unknown]
